FAERS Safety Report 20494682 (Version 1)
Quarter: 2022Q1

REPORT INFORMATION
  Report Type: Spontaneous
  Country: US (occurrence: None)
  Receive Date: 20220221
  Receipt Date: 20220221
  Transmission Date: 20220423
  Serious: Yes (Other)
  Sender: FDA-Public Use
  Company Number: US-MLMSERVICE-20220207-3354213-1

PATIENT
  Age: 18 Year
  Sex: Female

DRUGS (1)
  1. MIDAZOLAM [Suspect]
     Active Substance: MIDAZOLAM
     Indication: Anxiolytic therapy
     Dosage: UNKNOWN
     Route: 065

REACTIONS (3)
  - Paradoxical drug reaction [Unknown]
  - Dissociation [Unknown]
  - Unresponsive to stimuli [Unknown]
